FAERS Safety Report 5669798-9 (Version None)
Quarter: 2008Q1

REPORT INFORMATION
  Report Type: 
  Country: None (occurrence: None)
  Receive Date: 20080317
  Receipt Date: 20080305
  Transmission Date: 20080703
  Serious: Yes (Other)
  Sender: FDA-Public Use
  Company Number: GB-PFIZER INC-2008012274

PATIENT
  Sex: Male

DRUGS (2)
  1. ATORVASTATIN CALCIUM [Suspect]
  2. FUSIDIC ACID [Interacting]
     Indication: DEVICE RELATED INFECTION

REACTIONS (8)
  - DEVICE RELATED INFECTION [None]
  - DRUG INTERACTION [None]
  - DRUG TOXICITY [None]
  - JAUNDICE [None]
  - MUSCULAR WEAKNESS [None]
  - PNEUMONIA [None]
  - RENAL FAILURE ACUTE [None]
  - RHABDOMYOLYSIS [None]
